FAERS Safety Report 6923689-1 (Version None)
Quarter: 2010Q3

REPORT INFORMATION
  Report Type: 
  Country: None (occurrence: None)
  Receive Date: 20100813
  Receipt Date: 20100811
  Transmission Date: 20110219
  Serious: Yes (Hospitalization)
  Sender: FDA-Public Use
  Company Number: B0669334A

PATIENT
  Sex: Female

DRUGS (9)
  1. AUGMENTIN '125' [Suspect]
     Indication: BRONCHITIS
     Dosage: 1G TWICE PER DAY
     Route: 048
     Dates: start: 20100215, end: 20100219
  2. PREVISCAN [Suspect]
     Route: 048
     Dates: end: 20100217
  3. TEXODIL [Suspect]
     Indication: BRONCHITIS
     Dosage: 400MG TWICE PER DAY
     Route: 048
     Dates: start: 20100211, end: 20100215
  4. ATORVASTATIN CALCIUM [Concomitant]
     Route: 065
  5. FUROSEMIDE [Concomitant]
     Route: 065
  6. AMIODARONE [Concomitant]
     Route: 065
  7. LEVOTHYROXINE SODIUM [Concomitant]
     Route: 065
  8. EFFEXOR [Concomitant]
     Route: 065
  9. DISCOTRINE [Concomitant]
     Route: 065

REACTIONS (3)
  - DRUG INTERACTION [None]
  - HAEMATOMA [None]
  - INTERNATIONAL NORMALISED RATIO INCREASED [None]
